FAERS Safety Report 22040552 (Version 5)
Quarter: 2023Q4

REPORT INFORMATION
  Report Type: Report from Study
  Country: US (occurrence: None)
  Receive Date: 20230227
  Receipt Date: 20231204
  Transmission Date: 20240110
  Serious: Yes (Other)
  Sender: FDA-Public Use
  Company Number: US-ROCHE-3288013

PATIENT
  Age: 80 Year
  Sex: Male
  Weight: 76 kg

DRUGS (14)
  1. RANIBIZUMAB [Suspect]
     Active Substance: RANIBIZUMAB
     Indication: Neovascular age-related macular degeneration
     Dosage: ON 19/APR/2021 HE RECEIVED DOSE 100 MG/ML OF RANIBIZUMAB AND ON 12/SEP/2022, HE RECEIVED MOST RECENT
     Route: 050
     Dates: start: 20210419
  2. RANIBIZUMAB [Suspect]
     Active Substance: RANIBIZUMAB
  3. RANIBIZUMAB [Suspect]
     Active Substance: RANIBIZUMAB
  4. RANIBIZUMAB [Suspect]
     Active Substance: RANIBIZUMAB
  5. RANIBIZUMAB [Suspect]
     Active Substance: RANIBIZUMAB
  6. ROSUVASTATIN CALCIUM [Concomitant]
     Active Substance: ROSUVASTATIN CALCIUM
  7. CABERGOLINE [Concomitant]
     Active Substance: CABERGOLINE
  8. ZETIA [Concomitant]
     Active Substance: EZETIMIBE
     Indication: Hyperlipidaemia
     Route: 048
     Dates: start: 20201026
  9. CLOPIDOGREL [Concomitant]
     Active Substance: CLOPIDOGREL BISULFATE
     Indication: Coronary artery disease
     Dates: start: 20210501
  10. PROTONIX [Concomitant]
     Active Substance: PANTOPRAZOLE SODIUM
     Indication: Gastrooesophageal reflux disease
     Dates: start: 20210501
  11. RANIBIZUMAB [Concomitant]
     Active Substance: RANIBIZUMAB
     Indication: Neovascular age-related macular degeneration
     Dosage: 10 MG/ML
     Route: 050
     Dates: start: 20230710, end: 20230710
  12. RANIBIZUMAB [Concomitant]
     Active Substance: RANIBIZUMAB
     Route: 050
     Dates: start: 20230523, end: 20230523
  13. FARICIMAB [Concomitant]
     Active Substance: FARICIMAB
     Indication: Neovascular age-related macular degeneration
     Route: 050
     Dates: start: 20231003, end: 20231003
  14. FARICIMAB [Concomitant]
     Active Substance: FARICIMAB
     Route: 050
     Dates: start: 20231128, end: 20231128

REACTIONS (2)
  - Device issue [Unknown]
  - No adverse event [Unknown]

NARRATIVE: CASE EVENT DATE: 20230214
